FAERS Safety Report 11254217 (Version 1)
Quarter: 2015Q3

REPORT INFORMATION
  Report Type: Spontaneous
  Country: US (occurrence: None)
  Receive Date: 20150708
  Receipt Date: 20150708
  Transmission Date: 20151125
  Serious: No
  Sender: FDA-Public Use
  Company Number: None

PATIENT
  Age: 57 Year
  Sex: Female
  Weight: 90.72 kg

DRUGS (10)
  1. CLARITON D [Concomitant]
  2. PREVENTAL [Concomitant]
  3. EVENING OF PRIMROSE [Concomitant]
  4. FOLIC ACID. [Concomitant]
     Active Substance: FOLIC ACID
  5. C [Concomitant]
  6. CONTRAVE [Suspect]
     Active Substance: BUPROPION HYDROCHLORIDE\NALTREXONE HYDROCHLORIDE
     Indication: WEIGHT CONTROL
     Dosage: 120 2 TABS TWICE DAILY MOUTH
     Route: 048
     Dates: start: 20150616, end: 20150619
  7. BIOTIN [Concomitant]
     Active Substance: BIOTIN
  8. VITAMIN B12 [Concomitant]
     Active Substance: CYANOCOBALAMIN
  9. B6 [Concomitant]
     Active Substance: PYRIDOXINE HYDROCHLORIDE
  10. CHRONIUM [Concomitant]

REACTIONS (4)
  - Disorientation [None]
  - Headache [None]
  - Pain in extremity [None]
  - Liver function test abnormal [None]

NARRATIVE: CASE EVENT DATE: 20150619
